FAERS Safety Report 16943365 (Version 2)
Quarter: 2020Q1

REPORT INFORMATION
  Report Type: Spontaneous
  Country: US (occurrence: US)
  Receive Date: 20191022
  Receipt Date: 20200206
  Transmission Date: 20200409
  Serious: No
  Sender: FDA-Public Use
  Company Number: US-CELGENEUS-USA-20191005981

PATIENT
  Age: 56 Year
  Sex: Female

DRUGS (6)
  1. OTEZLA [Suspect]
     Active Substance: APREMILAST
     Indication: PSORIASIS
     Dosage: 60 MILLIGRAM
     Route: 048
  2. CICLOPIROX. [Concomitant]
     Active Substance: CICLOPIROX
     Indication: GUTTATE PSORIASIS
     Dosage: 1.54 PERCENT
     Route: 061
     Dates: start: 20190114, end: 20190612
  3. BETAMETHASONE DIPRO [Concomitant]
     Indication: PSORIASIS
     Route: 061
     Dates: start: 20191204
  4. OTEZLA [Suspect]
     Active Substance: APREMILAST
     Indication: GUTTATE PSORIASIS
     Dosage: STARTER PACK
     Route: 048
     Dates: start: 20181017
  5. HYDROXYZINE [Concomitant]
     Active Substance: HYDROXYZINE HYDROCHLORIDE
     Indication: PRODUCT USED FOR UNKNOWN INDICATION
     Route: 048
     Dates: start: 20191010, end: 20191024
  6. MOMETASONE [Concomitant]
     Active Substance: MOMETASONE
     Indication: GUTTATE PSORIASIS
     Dosage: .2 PERCENT
     Route: 061
     Dates: start: 20190114, end: 20190612

REACTIONS (1)
  - Psoriasis [Recovered/Resolved]

NARRATIVE: CASE EVENT DATE: 20191008
